FAERS Safety Report 9889315 (Version 1)
Quarter: 2014Q1

REPORT INFORMATION
  Report Type: Spontaneous
  Country: ES (occurrence: ES)
  Receive Date: 20140211
  Receipt Date: 20140211
  Transmission Date: 20141002
  Serious: Yes (Hospitalization)
  Sender: FDA-Public Use
  Company Number: ES-MALLINCKRODT-T201401161

PATIENT
  Age: 49 Year
  Sex: Male

DRUGS (3)
  1. OPTIRAY 350 [Suspect]
     Indication: ANGIOGRAM PULMONARY
     Route: 013
  2. BLOOD, WHOLE [Concomitant]
     Dosage: 3 UNITS
     Route: 042
  3. TRANEXAMIC ACID C [Concomitant]
     Route: 042

REACTIONS (1)
  - Cerebrovascular accident [Recovered/Resolved]
